FAERS Safety Report 9682728 (Version 1)
Quarter: 2013Q4

REPORT INFORMATION
  Report Type: Spontaneous
  Country: US (occurrence: US)
  Receive Date: 20131112
  Receipt Date: 20131112
  Transmission Date: 20140711
  Serious: No
  Sender: FDA-Public Use
  Company Number: US-009507513-1311USA003529

PATIENT
  Age: 63 Year
  Sex: Male

DRUGS (3)
  1. PROPECIA [Suspect]
     Indication: ALOPECIA
     Dosage: UNK
     Route: 048
     Dates: start: 200811, end: 201311
  2. SIMVASTATIN TABLETS, USP [Concomitant]
  3. ACETAZOLAMIDE [Concomitant]

REACTIONS (1)
  - Erectile dysfunction [Not Recovered/Not Resolved]
